FAERS Safety Report 8006472-8 (Version None)
Quarter: 2011Q4

REPORT INFORMATION
  Report Type: 
  Country: None (occurrence: None)
  Receive Date: 20111226
  Receipt Date: 20111215
  Transmission Date: 20120403
  Serious: Yes (Other)
  Sender: FDA-Public Use
  Company Number: US-DENTSPLY PHARMACEUTICAL - AA-2011SCDP004916

PATIENT
  Age: 4 Year
  Sex: Female

DRUGS (2)
  1. HEMOBAN [Suspect]
     Indication: HAEMORRHAGE
     Dosage: 0.01 ML, UNK
     Route: 004
     Dates: start: 20111109, end: 20111109
  2. RETREAT [Suspect]
     Indication: PRODUCT USED FOR UNKNOWN INDICATION
     Dosage: UNK

REACTIONS (1)
  - DYSPNOEA [None]
